FAERS Safety Report 9693340 (Version 2)
Quarter: 2014Q2

REPORT INFORMATION
  Report Type: Report from Study
  Country: IE (occurrence: IE)
  Receive Date: 20131118
  Receipt Date: 20140404
  Transmission Date: 20141212
  Serious: Yes (Hospitalization)
  Sender: FDA-Public Use
  Company Number: IE-ROCHE-1303350

PATIENT
  Age: 66 Year
  Sex: Female

DRUGS (2)
  1. RANIBIZUMAB [Suspect]
     Indication: DIABETIC RETINAL OEDEMA
     Dosage: LAST DOSE ON 17/SEP/2013
     Route: 050
     Dates: start: 20110614
  2. RANIBIZUMAB [Suspect]
     Dosage: LAST DOSE PRIOR TO THE SAE
     Route: 050
     Dates: start: 20130917

REACTIONS (1)
  - Cerebrovascular accident [Recovering/Resolving]
